FAERS Safety Report 4865366-7 (Version None)
Quarter: 2005Q4

REPORT INFORMATION
  Report Type: 
  Country: None (occurrence: None)
  Receive Date: 20051223
  Receipt Date: 20051219
  Transmission Date: 20060501
  Serious: Yes (Other)
  Sender: FDA-Public Use
  Company Number: CH-AMGEN-UK162062

PATIENT
  Sex: Female
  Weight: 48 kg

DRUGS (3)
  1. PALIFERMIN [Suspect]
     Indication: DRUG USE FOR UNKNOWN INDICATION
     Route: 042
     Dates: start: 20051104, end: 20051106
  2. NEURONTIN [Concomitant]
     Route: 048
  3. MELPHALAN [Concomitant]
     Route: 065

REACTIONS (7)
  - DIARRHOEA [None]
  - OEDEMA [None]
  - OEDEMA PERIPHERAL [None]
  - PRURITUS [None]
  - PYREXIA [None]
  - RASH [None]
  - SKIN EXFOLIATION [None]
